FAERS Safety Report 4764184-8 (Version None)
Quarter: 2005Q3

REPORT INFORMATION
  Report Type: 
  Country: None (occurrence: None)
  Receive Date: 20050902
  Receipt Date: 20050127
  Transmission Date: 20060218
  Serious: No
  Sender: FDA-Public Use
  Company Number: 003988

PATIENT
  Age: 47 Year
  Sex: Female
  Weight: 72.6 kg

DRUGS (8)
  1. DIAMOX [Suspect]
     Indication: EPILEPSY
     Dosage: 250.00 MG, TID, ORAL
     Route: 048
     Dates: start: 20030101, end: 20050104
  2. LAMICTAL [Concomitant]
  3. ZANTAC [Concomitant]
  4. CELEXA [Concomitant]
  5. FELBATOL [Concomitant]
  6. PROTONIX [Concomitant]
  7. COQ10 /USA/ (UBIDECARENONE) [Concomitant]
  8. VITAMINS [Concomitant]

REACTIONS (1)
  - NEPHROLITHIASIS [None]
